FAERS Safety Report 5144894-3 (Version None)
Quarter: 2006Q4

REPORT INFORMATION
  Report Type: 
  Country: None (occurrence: None)
  Receive Date: 20061107
  Receipt Date: 20061017
  Transmission Date: 20070319
  Serious: Yes (Other)
  Sender: FDA-Public Use
  Company Number: PHBS2006BR16242

PATIENT
  Age: 65 Year
  Sex: Female
  Weight: 61 kg

DRUGS (3)
  1. HERCEPTIN [Concomitant]
     Route: 065
  2. TAXOL [Concomitant]
     Route: 065
  3. ZOMETA [Suspect]
     Dosage: 1 DF, EVERY 4 WEEKS
     Route: 042
     Dates: start: 20031121, end: 20050701

REACTIONS (3)
  - BONE LESION [None]
  - OSTEONECROSIS [None]
  - WOUND DEBRIDEMENT [None]
